FAERS Safety Report 6240295-5 (Version None)
Quarter: 2009Q2

REPORT INFORMATION
  Report Type: 
  Country: None (occurrence: None)
  Receive Date: 20090623
  Receipt Date: 20080624
  Transmission Date: 20091009
  Serious: No
  Sender: FDA-Public Use
  Company Number: US-ASTRAZENECA-2008UW12680

PATIENT
  Sex: Female

DRUGS (4)
  1. PULMICORT RESPULES [Suspect]
     Indication: ASTHMA
     Route: 055
  2. PULMICORT RESPULES [Suspect]
     Route: 055
  3. DUONEB [Suspect]
     Indication: ASTHMA
     Route: 055
  4. DUONEB [Suspect]
     Route: 055

REACTIONS (2)
  - INCORRECT DOSE ADMINISTERED [None]
  - WHEEZING [None]
